FAERS Safety Report 10866386 (Version 2)
Quarter: 2015Q1

REPORT INFORMATION
  Report Type: Spontaneous
  Country: US (occurrence: None)
  Receive Date: 20150220
  Receipt Date: 20150304
  Transmission Date: 20150721
  Serious: No
  Sender: FDA-Public Use
  Company Number: 2744322

PATIENT
  Sex: Male

DRUGS (1)
  1. 2% LIDOCAINE HCL I NJ, USP (LIDOCAINE HYDROCHLORIDE) [Suspect]
     Active Substance: LIDOCAINE HYDROCHLORIDE
     Indication: NERVE BLOCK

REACTIONS (4)
  - Product quality issue [None]
  - Dizziness [None]
  - Heart rate increased [None]
  - Blood pressure increased [None]

NARRATIVE: CASE EVENT DATE: 20150203
